FAERS Safety Report 5803118-1 (Version None)
Quarter: 2008Q3

REPORT INFORMATION
  Report Type: 
  Country: None (occurrence: None)
  Receive Date: 20080708
  Receipt Date: 20080605
  Transmission Date: 20090109
  Serious: No
  Sender: FDA-Public Use
  Company Number: US-BAYER-200811407NA

PATIENT
  Age: 76 Year
  Sex: Female
  Weight: 42 kg

DRUGS (7)
  1. NEXAVAR [Suspect]
     Indication: METASTATIC MALIGNANT MELANOMA
     Dosage: UNIT DOSE: 200 MG
     Route: 048
     Dates: start: 20070301
  2. NEXAVAR [Suspect]
     Dosage: TOTAL DAILY DOSE: 200 MG  UNIT DOSE: 200 MG
     Route: 048
  3. TETRACYCLINE [Concomitant]
     Dosage: TOTAL DAILY DOSE: 250 MG  UNIT DOSE: 250 MG
     Dates: start: 19550101
  4. SYNTHROID [Concomitant]
     Dates: start: 19700101
  5. ESTRADIOL [Concomitant]
     Dates: start: 19770101
  6. ATENOLOL [Concomitant]
     Dates: start: 19960101
  7. ASPIRIN [Concomitant]
     Dates: start: 19900101

REACTIONS (9)
  - ABDOMINAL TENDERNESS [None]
  - AGEUSIA [None]
  - ALOPECIA [None]
  - BLISTER [None]
  - DIARRHOEA [None]
  - GLOSSODYNIA [None]
  - MUSCLE SPASMS [None]
  - PALMAR-PLANTAR ERYTHRODYSAESTHESIA SYNDROME [None]
  - RASH [None]
